FAERS Safety Report 20947927 (Version 6)
Quarter: 2025Q2

REPORT INFORMATION
  Report Type: Report from Study
  Country: US (occurrence: US)
  Receive Date: 20220611
  Receipt Date: 20250625
  Transmission Date: 20250716
  Serious: Yes (Other)
  Sender: TAKEDA
  Company Number: US-PAREXEL-2021US000544

PATIENT
  Age: 67 Year
  Sex: Female

DRUGS (5)
  1. GLASSIA [Suspect]
     Active Substance: .ALPHA.1-PROTEINASE INHIBITOR HUMAN
     Indication: Alpha-1 antitrypsin deficiency
  2. GLASSIA [Suspect]
     Active Substance: .ALPHA.1-PROTEINASE INHIBITOR HUMAN
     Dosage: UNK, 1/WEEK
  3. GLASSIA [Suspect]
     Active Substance: .ALPHA.1-PROTEINASE INHIBITOR HUMAN
  4. ARALAST NP [Suspect]
     Active Substance: .ALPHA.1-PROTEINASE INHIBITOR HUMAN
     Indication: Alpha-1 antitrypsin deficiency
  5. ARALAST NP [Suspect]
     Active Substance: .ALPHA.1-PROTEINASE INHIBITOR HUMAN
     Dosage: UNK, 1/WEEK

REACTIONS (14)
  - COVID-19 [Recovered/Resolved]
  - Upper respiratory tract infection [Recovered/Resolved]
  - Sleep disorder [Unknown]
  - Administration site bruise [Unknown]
  - Feeling cold [Unknown]
  - Bradyphrenia [Unknown]
  - Weight decreased [Recovered/Resolved]
  - Lung disorder [Recovered/Resolved]
  - Rhinorrhoea [Unknown]
  - Back pain [Unknown]
  - Fatigue [Unknown]
  - Oxygen saturation decreased [Not Recovered/Not Resolved]
  - Paraesthesia [Not Recovered/Not Resolved]
  - Blood glucose increased [Unknown]

NARRATIVE: CASE EVENT DATE: 20250623
